FAERS Safety Report 9280031 (Version 1)
Quarter: 2013Q2

REPORT INFORMATION
  Report Type: Spontaneous
  Country: US (occurrence: None)
  Receive Date: 20130506
  Receipt Date: 20130506
  Transmission Date: 20140414
  Serious: Yes (Other)
  Sender: FDA-Public Use
  Company Number: None

PATIENT
  Sex: Female

DRUGS (1)
  1. LOSARTAN [Suspect]
     Indication: HYPERTENSION
     Dosage: 50MG  BID  PO
     Route: 048

REACTIONS (3)
  - Cough [None]
  - Product substitution issue [None]
  - Unevaluable event [None]
